FAERS Safety Report 8895301 (Version 3)
Quarter: 2013Q1

REPORT INFORMATION
  Report Type: Report from Study
  Country: US (occurrence: US)
  Receive Date: 20121107
  Receipt Date: 20130227
  Transmission Date: 20140127
  Serious: Yes (Other)
  Sender: FDA-Public Use
  Company Number: US-GILEAD-2012-0064224

PATIENT
  Age: 53 Year
  Sex: Male

DRUGS (16)
  1. AMBRISENTAN [Suspect]
     Indication: PORTOPULMONARY HYPERTENSION
     Dosage: 5 MG, QD
     Route: 048
     Dates: start: 20120312, end: 20121101
  2. AMBRISENTAN [Suspect]
     Dosage: 10 MG, QD
     Route: 048
     Dates: start: 20120217, end: 20120312
  3. AMBRISENTAN [Suspect]
     Dosage: 5 MG, QD
     Route: 048
     Dates: start: 20120116, end: 20120217
  4. MIRTAZAPINE [Concomitant]
     Indication: DEPRESSION
     Dosage: UNK
     Dates: start: 20101111
  5. VITAMIN E                          /00110501/ [Concomitant]
     Indication: ROUTINE HEALTH MAINTENANCE
     Dosage: UNK
     Dates: start: 20101111
  6. VITAMIN A /00056001/ [Concomitant]
     Indication: ROUTINE HEALTH MAINTENANCE
     Dosage: UNK
     Dates: start: 20101111
  7. VITAMIN D /00107901/ [Concomitant]
     Indication: ROUTINE HEALTH MAINTENANCE
     Dosage: UNK
     Dates: start: 20101111
  8. ZINC SULFATE [Concomitant]
     Indication: ROUTINE HEALTH MAINTENANCE
     Dosage: UNK
     Dates: start: 20101111
  9. MUPIROCIN [Concomitant]
     Indication: NASAL DRYNESS
     Dosage: UNK
     Dates: start: 20101111
  10. ISONIAZID [Concomitant]
     Indication: TUBERCULOSIS
     Dosage: UNK
     Dates: start: 20100601
  11. POTASSIUM CHLORIDE [Concomitant]
     Indication: SUPPLEMENTATION THERAPY
     Dosage: UNK
     Dates: start: 20101111
  12. FUROSEMIDE [Concomitant]
     Indication: JOINT SWELLING
     Dosage: UNK
     Dates: start: 20101111
  13. METOLAZONE [Concomitant]
     Dosage: UNK
     Dates: start: 20101111
  14. OXYCODONE [Concomitant]
     Indication: PAIN
     Dosage: UNK
     Dates: start: 20100101
  15. PROPRANOLOL [Concomitant]
     Dosage: UNK
     Dates: start: 20101111
  16. OMEPRAZOLE [Concomitant]
     Indication: GASTROOESOPHAGEAL REFLUX DISEASE
     Dosage: UNK
     Dates: start: 20101111

REACTIONS (2)
  - Aspartate aminotransferase increased [Not Recovered/Not Resolved]
  - Alanine aminotransferase increased [Not Recovered/Not Resolved]
